FAERS Safety Report 5771826-7 (Version None)
Quarter: 2008Q2

REPORT INFORMATION
  Report Type: 
  Country: None (occurrence: None)
  Receive Date: 20080613
  Receipt Date: 20080606
  Transmission Date: 20081010
  Serious: Yes (Other)
  Sender: FDA-Public Use
  Company Number: A0704617A

PATIENT
  Age: 23 Year
  Sex: Male

DRUGS (6)
  1. LAMICTAL [Suspect]
     Indication: ANXIETY
     Dosage: 50MG AT NIGHT
     Route: 048
     Dates: start: 20070830
  2. XANAX [Concomitant]
     Indication: ANXIETY
     Dosage: 25MG AS REQUIRED
  3. AMBIEN [Concomitant]
     Dosage: 10MG AS REQUIRED
  4. LUNESTA [Concomitant]
     Dosage: 3MG AS REQUIRED
  5. SEROQUEL [Concomitant]
     Dosage: 25MG AT NIGHT
  6. ABILIFY [Concomitant]

REACTIONS (16)
  - ABNORMAL BEHAVIOUR [None]
  - ADVERSE EVENT [None]
  - AFFECT LABILITY [None]
  - ANXIETY [None]
  - BRADYPHRENIA [None]
  - DISTURBANCE IN ATTENTION [None]
  - FEELING ABNORMAL [None]
  - ILL-DEFINED DISORDER [None]
  - INSOMNIA [None]
  - IRRITABILITY [None]
  - MENTAL IMPAIRMENT [None]
  - MOOD SWINGS [None]
  - MUSCLE SPASMS [None]
  - PSYCHIATRIC SYMPTOM [None]
  - SOCIAL AVOIDANT BEHAVIOUR [None]
  - THERAPEUTIC RESPONSE DECREASED [None]
